FAERS Safety Report 8102328-0 (Version None)
Quarter: 2012Q1

REPORT INFORMATION
  Report Type: 
  Country: None (occurrence: None)
  Receive Date: 20120201
  Receipt Date: 20120130
  Transmission Date: 20120608
  Serious: Yes (Other)
  Sender: FDA-Public Use
  Company Number: US-PFIZER INC-2012025744

PATIENT
  Sex: Male
  Weight: 65.306 kg

DRUGS (2)
  1. CHANTIX [Suspect]
     Dosage: UNK
     Route: 048
     Dates: end: 20120101
  2. CHANTIX [Suspect]
     Indication: SMOKING CESSATION THERAPY
     Dosage: 0.5 MG, 1X/DAY
     Route: 048
     Dates: start: 20111101

REACTIONS (10)
  - SKIN DISCOLOURATION [None]
  - HEAD DISCOMFORT [None]
  - SKIN EXFOLIATION [None]
  - SUICIDAL BEHAVIOUR [None]
  - PSYCHOTIC DISORDER [None]
  - PERSONALITY CHANGE [None]
  - DEPRESSION [None]
  - RASH [None]
  - SLEEP DISORDER [None]
  - HALLUCINATION, AUDITORY [None]
